FAERS Safety Report 4673584-6 (Version None)
Quarter: 2005Q2

REPORT INFORMATION
  Report Type: 
  Country: None (occurrence: None)
  Receive Date: 20050525
  Receipt Date: 20050516
  Transmission Date: 20051028
  Serious: Yes (Other)
  Sender: FDA-Public Use
  Company Number: US-BRISTOL-MYERS SQUIBB COMPANY-12969150

PATIENT
  Age: 55 Year
  Sex: Female
  Weight: 73 kg

DRUGS (1)
  1. COUMADIN [Suspect]
     Indication: FACTOR V DEFICIENCY
     Dosage: DURATION:3 OR MORE YRS; PRIOR TO SEP-04, DOSES UP TO 8MG; FOLLOWING EVENT DOSE INCREASED UP TO 12MG

REACTIONS (2)
  - COELIAC DISEASE [None]
  - INTERNATIONAL NORMALISED RATIO FLUCTUATION [None]
